FAERS Safety Report 19484291 (Version 1)
Quarter: 2021Q3

REPORT INFORMATION
  Report Type: Report from Study
  Country: US (occurrence: US)
  Receive Date: 20210701
  Receipt Date: 20210701
  Transmission Date: 20211014
  Serious: Yes (Hospitalization)
  Sender: FDA-Public Use
  Company Number: US-PFIZER INC-2021719765

PATIENT
  Age: 49 Year
  Sex: Female

DRUGS (13)
  1. METHOTREXATE SODIUM. [Suspect]
     Active Substance: METHOTREXATE SODIUM
     Dosage: 50 MG/M2, CYCLIC(REGIMEN B, OVER 2HRS ON D1)
     Route: 042
  2. PEGFILGRASTIM [Suspect]
     Active Substance: PEGFILGRASTIM
     Dosage: 6 MG, CYCLIC (REGIMEN A OR FILGRASTIM 5?10 MCG/KG DAILY ON D4 UNTIL RECOVERY GRANULOCYTE COUNT)
     Route: 058
  3. PEGFILGRASTIM [Suspect]
     Active Substance: PEGFILGRASTIM
     Dosage: 6 MG, CYCLIC (REGIMEN B OR FILGRASTIM 5?10MCG/KG DAILY ON D4 UNTIL RECOVERY GRANULOCYTE COUNT)
     Route: 058
  4. INOTUZUMAB OZOGAMICIN [Suspect]
     Active Substance: INOTUZUMAB OZOGAMICIN
     Indication: ACUTE LYMPHOCYTIC LEUKAEMIA
     Dosage: 0.3 MG/M2, CYCLIC (REGIMEN A: OVER 1 HOUR ON D2 AND 8 OF CYCLES 1+3 (APPROX))
     Route: 042
     Dates: start: 20210117
  5. METHOTREXATE SODIUM. [Suspect]
     Active Substance: METHOTREXATE SODIUM
     Dosage: 200 MG/M2, CYCLIC(REGIMEN B, CONTINUOUS INFUSION OVER 22 HOURS ON D1)
     Route: 042
  6. CYCLOPHOSPHAMIDE. [Suspect]
     Active Substance: CYCLOPHOSPHAMIDE
     Dosage: 150 MG/M2, CYCLIC (REGIMEN A: OVER 3 HRS 2XD ON D 1?3)
     Route: 042
  7. MESNA. [Suspect]
     Active Substance: MESNA
     Dosage: 300 MG/M2, CYCLIC (REGIMEN A: DAILY OVER 24 HOURS FOR 3 DAYS ON DAYS 1?3)
     Route: 042
  8. RITUXIMAB. [Suspect]
     Active Substance: RITUXIMAB
     Dosage: 375 MG/M2, CYCLIC(REGIMEN B, ON D2 AND 8 OF CYCLES 2+4)
     Route: 042
  9. VINCRISTINE SULFATE. [Suspect]
     Active Substance: VINCRISTINE SULFATE
     Dosage: 2 MG, CYCLIC (REGIMEN A: D1 AND DAY 8 (APPROX))
     Route: 042
  10. CYTARABINE. [Suspect]
     Active Substance: CYTARABINE
     Dosage: 500 MG/M2, CYCLIC(REGIMEN B, OVER 3 HOURS TWICE A DAY X 4 DOSES ON D 2 AND 3)
     Route: 042
  11. RITUXIMAB. [Suspect]
     Active Substance: RITUXIMAB
     Dosage: 375 MG/M2, CYCLIC (REGIMEN A: D2 AND DAY 8 OFCYCLES 1+3)
     Route: 042
  12. DEXAMETHASONE. [Suspect]
     Active Substance: DEXAMETHASONE
     Dosage: 20 MG, CYCLIC (REGIMEN A: DAILY FOR 4 DAYS ON DAYS 1?4AND DAYS11?14 (APPROXIMATE))
     Route: 042
  13. INOTUZUMAB OZOGAMICIN [Suspect]
     Active Substance: INOTUZUMAB OZOGAMICIN
     Dosage: 0.3 MG/M2, CYCLIC ((REGIMEN B, ON D 2 AND 8 OF CYCLES 2+4 (APPROX))
     Route: 042

REACTIONS (1)
  - Ascites [Recovered/Resolved]

NARRATIVE: CASE EVENT DATE: 20210518
